FAERS Safety Report 18219108 (Version 2)
Quarter: 2020Q3

REPORT INFORMATION
  Report Type: Spontaneous
  Country: CN (occurrence: CN)
  Receive Date: 20200901
  Receipt Date: 20200910
  Transmission Date: 20201103
  Serious: No
  Sender: FDA-Public Use
  Company Number: CN-BAYER-2020-173801

PATIENT
  Age: 30 Year
  Sex: Female

DRUGS (1)
  1. YASMIN [Suspect]
     Active Substance: DROSPIRENONE\ETHINYL ESTRADIOL
     Indication: CONTRACEPTION
     Dosage: UNK
     Route: 048
     Dates: start: 20200802

REACTIONS (4)
  - Post procedural inflammation [None]
  - Inappropriate schedule of product administration [None]
  - Product dose omission issue [None]
  - Treatment noncompliance [None]

NARRATIVE: CASE EVENT DATE: 202008
